FAERS Safety Report 12162111 (Version 1)
Quarter: 2016Q1

REPORT INFORMATION
  Report Type: Spontaneous
  Country: US (occurrence: None)
  Receive Date: 20160307
  Receipt Date: 20160307
  Transmission Date: 20160526
  Serious: No
  Sender: FDA-Public Use
  Company Number: None

PATIENT
  Age: 47 Year
  Sex: Female
  Weight: 58.06 kg

DRUGS (5)
  1. MIRVASO [Suspect]
     Active Substance: BRIMONIDINE TARTRATE
     Indication: ROSACEA
     Dosage: PEA SIZE  ONCE DAILY  APPLIED TO A SURFACE, USUALLY THE SKIN
     Dates: start: 20160119, end: 20160210
  2. MIRANO (IUD) [Concomitant]
  3. ESTROGEN [Concomitant]
     Active Substance: ESTRONE\SUS SCROFA OVARY
  4. QVAR [Concomitant]
     Active Substance: BECLOMETHASONE DIPROPIONATE
  5. FLONASE [Concomitant]
     Active Substance: FLUTICASONE PROPIONATE

REACTIONS (3)
  - Erythema [None]
  - Condition aggravated [None]
  - Hot flush [None]

NARRATIVE: CASE EVENT DATE: 20160119
